FAERS Safety Report 25520923 (Version 1)
Quarter: 2025Q3

REPORT INFORMATION
  Report Type: Report from Study
  Country: EU (occurrence: EU)
  Receive Date: 20250705
  Receipt Date: 20250705
  Transmission Date: 20251021
  Serious: Yes (Life-Threatening, Hospitalization, Other)
  Sender: AUROBINDO
  Company Number: EU-ELI_LILLY_AND_COMPANY-FR202506008658

PATIENT
  Sex: Male

DRUGS (8)
  1. PEMETREXED [Suspect]
     Active Substance: PEMETREXED
     Indication: Lung adenocarcinoma
     Route: 065
     Dates: start: 202206
  2. CARBOPLATIN [Suspect]
     Active Substance: CARBOPLATIN
     Indication: Lung adenocarcinoma
     Route: 065
     Dates: start: 202206
  3. PREDNISONE [Suspect]
     Active Substance: PREDNISONE
     Indication: Product used for unknown indication
     Dosage: 1 MILLIGRAM, ONCE A DAY
     Route: 065
  4. PEMBROLIZUMAB [Suspect]
     Active Substance: PEMBROLIZUMAB
     Indication: Lung adenocarcinoma
     Route: 065
     Dates: start: 202206
  5. METHYLPREDNISOLONE [Suspect]
     Active Substance: METHYLPREDNISOLONE
     Indication: Extremity necrosis
     Dosage: 500 MILLIGRAM, ONCE A DAY
     Route: 042
  6. METHYLPREDNISOLONE [Suspect]
     Active Substance: METHYLPREDNISOLONE
     Indication: Pain
     Dosage: 1 MILLIGRAM/KILOGRAM, ONCE A DAY
     Route: 042
  7. ILOPROST [Suspect]
     Active Substance: ILOPROST
     Indication: Extremity necrosis
     Route: 065
  8. ILOPROST [Suspect]
     Active Substance: ILOPROST
     Indication: Pain

REACTIONS (7)
  - Respiratory failure [Recovered/Resolved]
  - Autoimmune vasculitis [Unknown]
  - Gangrene [Unknown]
  - Extremity necrosis [Recovering/Resolving]
  - Pulmonary embolism [Unknown]
  - Interstitial lung disease [Recovered/Resolved]
  - Raynaud^s phenomenon [Unknown]

NARRATIVE: CASE EVENT DATE: 20221101
